FAERS Safety Report 14297555 (Version 8)
Quarter: 2020Q1

REPORT INFORMATION
  Report Type: Spontaneous
  Country: US (occurrence: US)
  Receive Date: 20171218
  Receipt Date: 20200324
  Transmission Date: 20200409
  Serious: Yes (Hospitalization, Other)
  Sender: FDA-Public Use
  Company Number: US-BRISTOL-MYERS SQUIBB COMPANY-BMS-2017-111505

PATIENT
  Sex: Female
  Weight: 58.5 kg

DRUGS (1)
  1. ORENCIA [Suspect]
     Active Substance: ABATACEPT
     Indication: RHEUMATOID ARTHRITIS
     Dosage: 125 MILLIGRAM, QWK
     Route: 058
     Dates: start: 201506

REACTIONS (7)
  - Localised infection [Unknown]
  - Sinusitis [Unknown]
  - Adverse event [Unknown]
  - Myocardial infarction [Unknown]
  - Bronchitis [Unknown]
  - Product dose omission [Unknown]
  - Drug ineffective [Unknown]
